FAERS Safety Report 7440421-6 (Version None)
Quarter: 2011Q2

REPORT INFORMATION
  Report Type: 
  Country: None (occurrence: None)
  Receive Date: 20110427
  Receipt Date: 20110420
  Transmission Date: 20111010
  Serious: Yes (Hospitalization)
  Sender: FDA-Public Use
  Company Number: DE-BRISTOL-MYERS SQUIBB COMPANY-14628812

PATIENT
  Age: 65 Year
  Sex: Female
  Weight: 94 kg

DRUGS (3)
  1. CISPLATIN [Suspect]
     Indication: GASTROOESOPHAGEAL CANCER
     Dosage: GIVEN ON DAY1 OF CYCLE; RECENT INFUSION-6MAY09
     Route: 042
     Dates: start: 20090402
  2. CETUXIMAB [Suspect]
     Indication: GASTROOESOPHAGEAL CANCER
     Dosage: STRENGTH:5MG/ML RECENT INFUSION 6MAY09
     Route: 042
     Dates: start: 20090401
  3. CAPECITABINE [Suspect]
     Indication: GASTROOESOPHAGEAL CANCER
     Dosage: TAKEN FROM DAY1-15 RECENT DOSE-9MAY09 TAB FORM
     Route: 048
     Dates: start: 20090401

REACTIONS (2)
  - NAUSEA [None]
  - DECREASED APPETITE [None]
